FAERS Safety Report 6417284-0 (Version None)
Quarter: 2009Q4

REPORT INFORMATION
  Report Type: 
  Country: None (occurrence: None)
  Receive Date: 20091028
  Receipt Date: 20091015
  Transmission Date: 20100525
  Serious: Yes (Other)
  Sender: FDA-Public Use
  Company Number: PHEH2009US13621

PATIENT
  Sex: Female

DRUGS (1)
  1. AFINITOR [Suspect]
     Indication: NEOPLASM MALIGNANT
     Dosage: UNK, UNK
     Route: 065
     Dates: end: 20091001

REACTIONS (4)
  - COUGH [None]
  - DYSPNOEA [None]
  - METASTASES TO LUNG [None]
  - PYREXIA [None]
